FAERS Safety Report 4406530-0 (Version None)
Quarter: 2004Q3

REPORT INFORMATION
  Report Type: 
  Country: None (occurrence: None)
  Receive Date: 20040723
  Receipt Date: 20040602
  Transmission Date: 20050211
  Serious: Yes (Hospitalization)
  Sender: FDA-Public Use
  Company Number: US-ROCHE-369780

PATIENT
  Age: 11 Year
  Sex: Male
  Weight: 31.3 kg

DRUGS (10)
  1. FUZEON [Suspect]
     Route: 058
     Dates: start: 20040408, end: 20040610
  2. AZT [Suspect]
     Route: 048
     Dates: start: 20040408, end: 20040604
  3. VIREAD [Concomitant]
     Route: 048
     Dates: start: 20040408, end: 20040610
  4. AGENERASE [Concomitant]
     Route: 048
     Dates: start: 20040408, end: 20040610
  5. NORVIR [Concomitant]
     Route: 048
     Dates: start: 20040408, end: 20040610
  6. EPOGEN [Concomitant]
  7. PREDNISONE [Concomitant]
  8. BACTRIM [Concomitant]
  9. TUMS [Concomitant]
  10. ROCALTROL [Concomitant]

REACTIONS (11)
  - BLOOD CALCIUM DECREASED [None]
  - BLOOD CREATININE INCREASED [None]
  - BLOOD UREA INCREASED [None]
  - CHILLS [None]
  - COUGH [None]
  - FATIGUE [None]
  - HAEMOGLOBIN DECREASED [None]
  - HYPERSOMNIA [None]
  - INJECTION SITE NODULE [None]
  - PAIN IN EXTREMITY [None]
  - SOMNOLENCE [None]
